FAERS Safety Report 10287084 (Version 1)
Quarter: 2014Q3

REPORT INFORMATION
  Report Type: Report from Study
  Country: DE (occurrence: AR)
  Receive Date: 20140709
  Receipt Date: 20140709
  Transmission Date: 20150326
  Serious: Yes (Death, Other)
  Sender: FDA-Public Use
  Company Number: DE-ACTELION-A-NJ2014-101772

PATIENT
  Sex: Female

DRUGS (1)
  1. VENTAVIS [Suspect]
     Active Substance: ILOPROST
     Indication: PULMONARY ARTERIAL HYPERTENSION
     Dosage: 2.5 MCG, BID
     Route: 055
     Dates: start: 20140624, end: 201406

REACTIONS (8)
  - Caesarean section [Unknown]
  - Ischaemic stroke [Fatal]
  - Convulsion [Fatal]
  - Maternal exposure during pregnancy [Unknown]
  - Stillbirth [Unknown]
  - Post procedural haemorrhage [Fatal]
  - Headache [Fatal]
  - Headache [Fatal]

NARRATIVE: CASE EVENT DATE: 20140624
